FAERS Safety Report 7773761-1 (Version None)
Quarter: 2011Q3

REPORT INFORMATION
  Report Type: 
  Country: None (occurrence: None)
  Receive Date: 20110923
  Receipt Date: 20110909
  Transmission Date: 20111222
  Serious: Yes (Other)
  Sender: FDA-Public Use
  Company Number: GB-JNJFOC-20110808066

PATIENT
  Age: 32 Year
  Sex: Female

DRUGS (2)
  1. CETIRIZINE HCL [Suspect]
     Route: 048
  2. CETIRIZINE HCL [Suspect]
     Indication: MECHANICAL URTICARIA
     Route: 048

REACTIONS (2)
  - DRUG ERUPTION [None]
  - OFF LABEL USE [None]
